FAERS Safety Report 21220813 (Version 2)
Quarter: 2025Q2

REPORT INFORMATION
  Report Type: Report from Study
  Country: SE (occurrence: SE)
  Receive Date: 20220817
  Receipt Date: 20250614
  Transmission Date: 20250716
  Serious: Yes (Death, Life-Threatening, Hospitalization, Other)
  Sender: AUROBINDO
  Company Number: SE-CELLTRION HEALTHCARE HUNGARY KFT-2022SE009512

PATIENT
  Age: 3 Year
  Sex: Female

DRUGS (16)
  1. CLOPIDOGREL [Suspect]
     Active Substance: CLOPIDOGREL BISULFATE
     Indication: Hepatosplenomegaly
     Route: 065
  2. CLOPIDOGREL [Suspect]
     Active Substance: CLOPIDOGREL BISULFATE
     Indication: Ascites
  3. ACETAMINOPHEN [Suspect]
     Active Substance: ACETAMINOPHEN
     Indication: Ascites
     Route: 065
  4. ACETAMINOPHEN [Suspect]
     Active Substance: ACETAMINOPHEN
     Indication: Hepatosplenomegaly
  5. IMMUNE GLOBULIN NOS [Suspect]
     Active Substance: IMMUNE GLOBULIN NOS
     Indication: COVID-19
     Route: 042
  6. IMMUNE GLOBULIN NOS [Suspect]
     Active Substance: IMMUNE GLOBULIN NOS
     Indication: Ascites
  7. IMMUNE GLOBULIN NOS [Suspect]
     Active Substance: IMMUNE GLOBULIN NOS
     Indication: Pneumonia
  8. IMMUNE GLOBULIN NOS [Suspect]
     Active Substance: IMMUNE GLOBULIN NOS
     Indication: Hepatosplenomegaly
  9. PREDNISOLONE [Suspect]
     Active Substance: PREDNISOLONE
     Indication: Pneumonia
     Dosage: 2 MILLIGRAM/KILOGRAM, ONCE A DAY
     Route: 065
  10. PREDNISOLONE [Suspect]
     Active Substance: PREDNISOLONE
     Indication: COVID-19
  11. IBUPROFEN [Suspect]
     Active Substance: IBUPROFEN
     Indication: Ascites
     Route: 065
  12. IBUPROFEN [Suspect]
     Active Substance: IBUPROFEN
     Indication: Hepatosplenomegaly
  13. ASPIRIN [Suspect]
     Active Substance: ASPIRIN
     Indication: COVID-19
     Dosage: 50 MILLIGRAM/KILOGRAM, ONCE A DAY
     Route: 065
  14. ASPIRIN [Suspect]
     Active Substance: ASPIRIN
     Indication: Pneumonia
  15. INFLIXIMAB [Suspect]
     Active Substance: INFLIXIMAB
     Indication: Pneumonia
     Route: 065
     Dates: start: 2020
  16. INFLIXIMAB [Suspect]
     Active Substance: INFLIXIMAB
     Indication: COVID-19

REACTIONS (6)
  - Ventricular tachyarrhythmia [Fatal]
  - Multisystem inflammatory syndrome [Fatal]
  - COVID-19 pneumonia [Fatal]
  - Acute left ventricular failure [Fatal]
  - Drug ineffective [Fatal]
  - Off label use [Unknown]
